FAERS Safety Report 14363145 (Version 1)
Quarter: 2018Q1

REPORT INFORMATION
  Report Type: Spontaneous
  Country: US (occurrence: US)
  Receive Date: 20180108
  Receipt Date: 20180108
  Transmission Date: 20180509
  Serious: No
  Sender: FDA-Public Use
  Company Number: US-ALLERGAN-1679376US

PATIENT
  Age: 76 Year
  Sex: Female
  Weight: 71.66 kg

DRUGS (4)
  1. ATORVASTATIN CALCIUM. [Concomitant]
     Active Substance: ATORVASTATIN CALCIUM
     Indication: BLOOD CHOLESTEROL INCREASED
     Dosage: UNK UNK, QHS
     Dates: start: 201609
  2. BYSTOLIC [Suspect]
     Active Substance: NEBIVOLOL HYDROCHLORIDE
     Indication: THROMBOSIS
     Dosage: 2.5 MG, QD
     Route: 048
     Dates: start: 20161001
  3. BABY ASPIRIN [Concomitant]
     Active Substance: ASPIRIN
     Indication: THROMBOSIS
     Dosage: UNK
     Dates: start: 201609
  4. BRILINTA [Concomitant]
     Active Substance: TICAGRELOR
     Indication: THROMBOSIS
     Dosage: 90 MG, QD
     Dates: start: 201609

REACTIONS (2)
  - Asthenia [Not Recovered/Not Resolved]
  - Off label use [Unknown]

NARRATIVE: CASE EVENT DATE: 201610
